FAERS Safety Report 20328850 (Version 2)
Quarter: 2022Q1

REPORT INFORMATION
  Report Type: Spontaneous
  Country: CN (occurrence: None)
  Receive Date: 20220112
  Receipt Date: 20220116
  Transmission Date: 20220424
  Serious: Yes (Hospitalization)
  Sender: FDA-Public Use
  Company Number: CN-Merck Healthcare KGaA-9291876

PATIENT
  Age: 74 Year
  Sex: Female

DRUGS (6)
  1. GLUCOPHAGE XR [Suspect]
     Active Substance: METFORMIN HYDROCHLORIDE
     Indication: Type 2 diabetes mellitus
     Route: 048
     Dates: start: 20211111
  2. GLUCOPHAGE XR [Suspect]
     Active Substance: METFORMIN HYDROCHLORIDE
     Route: 048
     Dates: start: 20211123
  3. HENAGLIFLOZIN PROLINE [Suspect]
     Active Substance: HENAGLIFLOZIN PROLINE
     Indication: Type 2 diabetes mellitus
     Dosage: ONE PACKET
     Route: 048
     Dates: start: 20211221, end: 20211227
  4. HENAGLIFLOZIN PROLINE [Suspect]
     Active Substance: HENAGLIFLOZIN PROLINE
     Dosage: ONE PACKET
     Route: 048
     Dates: start: 20211231
  5. ROSUVASTATIN CALCIUM [Concomitant]
     Active Substance: ROSUVASTATIN CALCIUM
     Indication: Coronary artery disease
     Route: 048
     Dates: start: 2019
  6. ASPIRIN [Concomitant]
     Active Substance: ASPIRIN
     Indication: Coronary artery disease
     Dosage: ENTERIC-COATED TABLETS
     Route: 048
     Dates: start: 2014

REACTIONS (3)
  - Nausea [Recovered/Resolved]
  - Vomiting [Recovered/Resolved]
  - Decreased appetite [Recovered/Resolved]

NARRATIVE: CASE EVENT DATE: 20211226
